FAERS Safety Report 11740507 (Version 2)
Quarter: 2015Q4

REPORT INFORMATION
  Report Type: Spontaneous
  Country: US (occurrence: US)
  Receive Date: 20151110
  Receipt Date: 20151120
  Transmission Date: 20160304
  Serious: No
  Sender: FDA-Public Use
  Company Number: US-ELI_LILLY_AND_COMPANY-US201110003683

PATIENT
  Age: 85 Year
  Sex: Female

DRUGS (8)
  1. FORTEO [Suspect]
     Active Substance: TERIPARATIDE
     Dosage: 20 UG, QD
     Route: 058
  2. FORTEO [Suspect]
     Active Substance: TERIPARATIDE
     Dosage: 20 UG, QD
     Route: 058
  3. FORTEO [Suspect]
     Active Substance: TERIPARATIDE
     Dosage: 20 UG, QD
     Route: 058
  4. FORTEO [Suspect]
     Active Substance: TERIPARATIDE
     Dosage: 20 UG, QD
     Route: 058
     Dates: start: 20111214
  5. FORTEO [Suspect]
     Active Substance: TERIPARATIDE
     Indication: OSTEOPOROSIS
     Dosage: 20 UG, QD
     Route: 058
     Dates: start: 20110713
  6. FORTEO [Suspect]
     Active Substance: TERIPARATIDE
     Dosage: 20 UG, QD
     Route: 058
  7. FORTEO [Suspect]
     Active Substance: TERIPARATIDE
     Dosage: 20 UG, QD
     Route: 058
  8. FORTEO [Suspect]
     Active Substance: TERIPARATIDE
     Dosage: 20 UG, QD
     Route: 058

REACTIONS (17)
  - Incorrect product storage [Unknown]
  - Hypoacusis [Unknown]
  - Arthritis [Unknown]
  - Distractibility [Unknown]
  - Injection site bruising [Unknown]
  - Drug dose omission [Unknown]
  - Fear [Unknown]
  - Adverse event [Unknown]
  - Hypertension [Unknown]
  - Arthralgia [Not Recovered/Not Resolved]
  - Drug dose omission [Unknown]
  - Myalgia [Unknown]
  - Cardiac disorder [Unknown]
  - Injection site pain [Not Recovered/Not Resolved]
  - Injection site haemorrhage [Not Recovered/Not Resolved]
  - Fatigue [Unknown]
  - Pain in extremity [Unknown]

NARRATIVE: CASE EVENT DATE: 201201
